FAERS Safety Report 10641449 (Version 2)
Quarter: 2014Q4

REPORT INFORMATION
  Report Type: Spontaneous
  Country: IN (occurrence: None)
  Receive Date: 20141208
  Receipt Date: 20141211
  Transmission Date: 20150529
  Serious: Yes (Other)
  Sender: FDA-Public Use
  Company Number: FK201405636

PATIENT
  Age: 61 Year
  Sex: Male

DRUGS (4)
  1. CAPECITABINE (MANUFACTURER UNKNOWN) (CAPECITABINE) (CAPECITABINE) [Suspect]
     Active Substance: CAPECITABINE
     Indication: ADENOCARCINOMA OF COLON
     Dosage: ON DAY 1-14, STOPPED
  2. UFTORAL [Suspect]
     Active Substance: TEGAFUR\URACIL
     Indication: ADENOCARCINOMA OF COLON
     Dosage: 1D
  3. OXALIPLATIN. [Suspect]
     Active Substance: OXALIPLATIN
     Indication: ADENOCARCINOMA OF COLON
     Dosage: STOPPED
  4. FOLINIC ACID (FOLINIC ACID) [Concomitant]

REACTIONS (4)
  - Neutropenia [None]
  - Palmar-plantar erythrodysaesthesia syndrome [None]
  - Diarrhoea [None]
  - Mucosal inflammation [None]
